FAERS Safety Report 17917222 (Version 1)
Quarter: 2020Q2

REPORT INFORMATION
  Report Type: Spontaneous
  Country: US (occurrence: US)
  Receive Date: 20200619
  Receipt Date: 20200619
  Transmission Date: 20200714
  Serious: Yes (Other)
  Sender: FDA-Public Use
  Company Number: US-BAUSCH-BL-2020-017303

PATIENT
  Age: 65 Year
  Sex: Female

DRUGS (3)
  1. TIMOLOL. [Suspect]
     Active Substance: TIMOLOL
     Indication: INTRAOCULAR PRESSURE INCREASED
     Dosage: PRESCRIBED 1 DROP IN THE LEFT EYE IN THE MORNINGS
     Route: 047
     Dates: start: 202005
  2. LATANOPROST OPHTHALMIC SOLUTION 0.005% [Suspect]
     Active Substance: LATANOPROST
     Indication: GLAUCOMA
     Dosage: STARTED SOMETIME IN 2018 OR 2019, 1 DROP IN EACH EYE ONCE DAILY IN THE EVENING
     Route: 047
     Dates: end: 2019
  3. LATANOPROST OPHTHALMIC SOLUTION 0.005% [Suspect]
     Active Substance: LATANOPROST
     Dosage: PATIENT^S DOSE OF LATANOPROST WAS CHANGED TO 1 DROP IN THE LEFT EYE ONCE DAILY IN THE EVENING
     Route: 047
     Dates: start: 2019

REACTIONS (4)
  - Wrong technique in product usage process [Unknown]
  - Blindness [Unknown]
  - Lacrimation increased [Not Recovered/Not Resolved]
  - Intraocular pressure increased [Not Recovered/Not Resolved]

NARRATIVE: CASE EVENT DATE: 2019
